FAERS Safety Report 6157198-7 (Version None)
Quarter: 2009Q2

REPORT INFORMATION
  Report Type: 
  Country: None (occurrence: None)
  Receive Date: 20090416
  Receipt Date: 20090407
  Transmission Date: 20091009
  Serious: Yes (Hospitalization)
  Sender: FDA-Public Use
  Company Number: JP-MERCK-0903USA05583

PATIENT
  Age: 69 Year
  Sex: Male

DRUGS (5)
  1. SINGULAIR [Suspect]
     Indication: ASTHMA
     Route: 048
     Dates: start: 20090120, end: 20090216
  2. MUCODYNE [Concomitant]
     Indication: ASTHMA
     Route: 048
     Dates: start: 20041201, end: 20090220
  3. QVAR 40 [Concomitant]
     Indication: ASTHMA
     Dates: start: 20090120, end: 20090222
  4. ONON [Concomitant]
     Indication: ASTHMA
     Route: 048
     Dates: start: 20070109, end: 20090119
  5. FLUTIDE [Concomitant]
     Indication: ASTHMA
     Dates: start: 20041201, end: 20090119

REACTIONS (1)
  - DRUG ERUPTION [None]
